FAERS Safety Report 11526818 (Version 1)
Quarter: 2015Q3

REPORT INFORMATION
  Report Type: Spontaneous
  Country: US (occurrence: US)
  Receive Date: 20150903
  Receipt Date: 20150903
  Transmission Date: 20151125
  Serious: No
  Sender: FDA-Public Use
  Company Number: US-ELI_LILLY_AND_COMPANY-US201403008306

PATIENT
  Sex: Female

DRUGS (4)
  1. CYMBALTA [Suspect]
     Active Substance: DULOXETINE HYDROCHLORIDE
     Dosage: 50 MG, UNK
  2. CYMBALTA [Suspect]
     Active Substance: DULOXETINE HYDROCHLORIDE
     Dosage: 1 UNK, UNK
  3. CYMBALTA [Suspect]
     Active Substance: DULOXETINE HYDROCHLORIDE
     Indication: DISTURBANCE IN SEXUAL AROUSAL
     Dosage: 60 MG, UNK
  4. CYMBALTA [Suspect]
     Active Substance: DULOXETINE HYDROCHLORIDE
     Dosage: 40 MG, UNK

REACTIONS (9)
  - Weight increased [Recovering/Resolving]
  - Drug withdrawal syndrome [Recovering/Resolving]
  - Fatigue [Recovering/Resolving]
  - Coordination abnormal [Recovering/Resolving]
  - Cognitive disorder [Recovering/Resolving]
  - Paraesthesia [Recovering/Resolving]
  - Off label use [Not Recovered/Not Resolved]
  - Dizziness [Recovering/Resolving]
  - Wrong technique in product usage process [Unknown]
